FAERS Safety Report 5891903-X (Version None)
Quarter: 2008Q3

REPORT INFORMATION
  Report Type: 
  Country: None (occurrence: None)
  Receive Date: 20080922
  Receipt Date: 20080911
  Transmission Date: 20090109
  Serious: Yes (Hospitalization)
  Sender: FDA-Public Use
  Company Number: MX-ELI_LILLY_AND_COMPANY-MX200808004051

PATIENT
  Age: 84 Year
  Sex: Male

DRUGS (4)
  1. CYMBALTA [Suspect]
     Indication: DEPRESSION
     Dosage: UNK, UNKNOWN
     Route: 065
     Dates: end: 20020101
  2. CLONAZEPAM [Concomitant]
     Indication: DEMENTIA
     Dosage: UNK, UNKNOWN
     Route: 065
     Dates: start: 20020101
  3. RISPERIDONE [Concomitant]
     Indication: DEMENTIA
     Dosage: UNK, UNKNOWN
     Route: 065
  4. ANTIDEPRESSANTS [Concomitant]
     Indication: DEMENTIA
     Dosage: UNK, UNKNOWN
     Route: 065

REACTIONS (1)
  - DEMENTIA [None]
